FAERS Safety Report 10562434 (Version 1)
Quarter: 2014Q4

REPORT INFORMATION
  Report Type: Spontaneous
  Country: US (occurrence: None)
  Receive Date: 20141103
  Receipt Date: 20141103
  Transmission Date: 20150529
  Serious: Yes (Hospitalization)
  Sender: FDA-Public Use
  Company Number: None

PATIENT
  Age: 24 Year
  Sex: Male
  Weight: 112.4 kg

DRUGS (7)
  1. MORPHINE [Concomitant]
     Active Substance: MORPHINE
  2. DOXORUBICIN HYDROCHLORIDE. [Suspect]
     Active Substance: DOXORUBICIN HYDROCHLORIDE
  3. CYCLOPHOSPHAMIDE. [Suspect]
     Active Substance: CYCLOPHOSPHAMIDE
  4. ETOPOSIDE (VP-16) [Suspect]
     Active Substance: ETOPOSIDE
  5. METHOTREXATE [Suspect]
     Active Substance: METHOTREXATE
  6. PREDNISONE. [Suspect]
     Active Substance: PREDNISONE
  7. FILGRASTIM [Concomitant]
     Active Substance: FILGRASTIM

REACTIONS (14)
  - Pulmonary embolism [None]
  - Inflammation [None]
  - Abdominal pain upper [None]
  - Nausea [None]
  - Non-cardiac chest pain [None]
  - Vomiting [None]
  - Leukopenia [None]
  - Infection [None]
  - Anaemia [None]
  - Computerised tomogram thorax abnormal [None]
  - Neutrophil count decreased [None]
  - Pyrexia [None]
  - Anxiety [None]
  - Lymphadenopathy mediastinal [None]

NARRATIVE: CASE EVENT DATE: 20141016
